FAERS Safety Report 23596168 (Version 2)
Quarter: 2024Q1

REPORT INFORMATION
  Report Type: Spontaneous
  Country: PL (occurrence: PL)
  Receive Date: 20240305
  Receipt Date: 20240313
  Transmission Date: 20240409
  Serious: Yes (Life-Threatening, Hospitalization, Disabling, Other)
  Sender: FDA-Public Use
  Company Number: None

PATIENT
  Age: 81 Year
  Sex: Male

DRUGS (1)
  1. METHOTREXATE [Suspect]
     Active Substance: METHOTREXATE
     Indication: Rheumatoid arthritis
     Route: 065

REACTIONS (7)
  - Meningitis listeria [Recovered/Resolved with Sequelae]
  - Infection susceptibility increased [Recovered/Resolved]
  - Urosepsis [Unknown]
  - Pneumonia aspiration [Unknown]
  - Leukocyturia [Unknown]
  - Rhabdomyolysis [Unknown]
  - Sepsis [Recovered/Resolved]
